FAERS Safety Report 9106356 (Version 2)
Quarter: 2013Q1

REPORT INFORMATION
  Report Type: Spontaneous
  Country: US (occurrence: US)
  Receive Date: 20130220
  Receipt Date: 20130308
  Transmission Date: 20140127
  Serious: Yes (Hospitalization)
  Sender: FDA-Public Use
  Company Number: US-RB-049776-13

PATIENT
  Age: 12 Year
  Sex: Male
  Weight: 67 kg

DRUGS (3)
  1. MUCINEX DM MAXIMUM STRENGTH (GUAIFENESIN) [Suspect]
     Indication: NASAL CONGESTION
     Dosage: STOPPED ON 30-JAN-2013
     Route: 048
     Dates: start: 20130129
  2. MUCINEX DM MAXIMUM STRENGTH (GUAIFENESIN) [Suspect]
     Indication: COUGH
     Dosage: STOPPED ON 30-JAN-2013
     Route: 048
     Dates: start: 20130129
  3. MUCINEX DM MAXIMUM STRENGTH (DEXTROMETHORPHAN HYDROBROMIDE) [Suspect]

REACTIONS (6)
  - Calcium deficiency [Recovered/Resolved]
  - Hypoaesthesia [Recovered/Resolved]
  - Tremor [Recovered/Resolved]
  - Yawning [Recovered/Resolved]
  - Influenza [Recovered/Resolved]
  - Diarrhoea [Recovered/Resolved]
